FAERS Safety Report 15654367 (Version 5)
Quarter: 2019Q3

REPORT INFORMATION
  Report Type: Report from Study
  Country: None (occurrence: CO)
  Receive Date: 20181126
  Receipt Date: 20190820
  Transmission Date: 20191004
  Serious: Yes (Disabling, Other)
  Sender: FDA-Public Use
  Company Number: CO-ABBVIE-18K-036-2567135-00

PATIENT
  Age: 30 Year
  Sex: Male
  Weight: 62 kg

DRUGS (3)
  1. HUMIRA [Suspect]
     Active Substance: ADALIMUMAB
     Indication: COLITIS ULCERATIVE
     Route: 058
     Dates: end: 20181023
  2. MESALAZINE [Concomitant]
     Active Substance: MESALAMINE
     Indication: PRODUCT USED FOR UNKNOWN INDICATION
  3. HUMIRA [Suspect]
     Active Substance: ADALIMUMAB
     Indication: COLITIS ULCERATIVE
     Route: 058
     Dates: start: 20170719

REACTIONS (18)
  - Cyst [Unknown]
  - Benign neoplasm [Unknown]
  - Rectal haemorrhage [Recovered/Resolved]
  - Drug ineffective [Not Recovered/Not Resolved]
  - Anal fistula [Recovered/Resolved]
  - Intestinal perforation [Recovered/Resolved]
  - Haemorrhoids [Unknown]
  - Haemorrhage [Not Recovered/Not Resolved]
  - Fistula [Not Recovered/Not Resolved]
  - Colitis [Not Recovered/Not Resolved]
  - Colitis ulcerative [Not Recovered/Not Resolved]
  - Malaise [Recovered/Resolved]
  - Hordeolum [Not Recovered/Not Resolved]
  - Abdominal pain [Not Recovered/Not Resolved]
  - Gastrointestinal infection [Unknown]
  - Gastroenteritis viral [Recovered/Resolved]
  - Large intestinal stenosis [Unknown]
  - Crohn^s disease [Unknown]

NARRATIVE: CASE EVENT DATE: 20170719
